FAERS Safety Report 23097888 (Version 1)
Quarter: 2023Q4

REPORT INFORMATION
  Report Type: Spontaneous
  Country: US (occurrence: US)
  Receive Date: 20231023
  Receipt Date: 20231023
  Transmission Date: 20240110
  Serious: Yes (Death, Life-Threatening, Hospitalization)
  Sender: FDA-Public Use
  Company Number: US-STRIDES ARCOLAB LIMITED-2023SP015809

PATIENT
  Age: 64 Year
  Sex: Male

DRUGS (2)
  1. PREDNISOLONE [Suspect]
     Active Substance: PREDNISOLONE
     Indication: Rheumatoid arthritis
     Dosage: UNK
     Route: 065
  2. PREDNISOLONE [Suspect]
     Active Substance: PREDNISOLONE
     Indication: Immunosuppressant drug therapy

REACTIONS (14)
  - Death [Fatal]
  - Shock [Unknown]
  - Encephalopathy [Unknown]
  - Atrial fibrillation [Unknown]
  - Renal injury [Unknown]
  - Peripheral ischaemia [Unknown]
  - Septic embolus [Unknown]
  - Pneumonia pneumococcal [Unknown]
  - Streptococcal endocarditis [Unknown]
  - Meningitis pneumococcal [Unknown]
  - Septic cerebral embolism [Unknown]
  - Endocarditis [Unknown]
  - CNS ventriculitis [Unknown]
  - Meningitis [Unknown]
